FAERS Safety Report 6976387-2 (Version None)
Quarter: 2010Q3

REPORT INFORMATION
  Report Type: 
  Country: None (occurrence: None)
  Receive Date: 20100910
  Receipt Date: 20100831
  Transmission Date: 20110219
  Serious: Yes (Hospitalization, Congenital Anomaly, Other)
  Sender: FDA-Public Use
  Company Number: US-PFIZER INC-2010109657

PATIENT
  Sex: Female
  Weight: 3 kg

DRUGS (5)
  1. ZOLOFT [Suspect]
     Indication: DEPRESSION
     Dosage: 50 MG, UNK
     Route: 064
     Dates: start: 20020409
  2. ZOLOFT [Suspect]
     Dosage: 100 MG, 1X/DAY
     Route: 064
     Dates: start: 20020520
  3. PHENOBARBITAL [Concomitant]
     Indication: CONVULSION
     Dosage: 60 MG, 3X/DAY
     Route: 064
  4. SYNTHROID [Concomitant]
     Dosage: 150 UG, 1X/DAY
     Route: 064
  5. COLACE [Concomitant]
     Route: 064

REACTIONS (7)
  - ATRIAL SEPTAL DEFECT [None]
  - AUTOIMMUNE THYROIDITIS [None]
  - DRUG EXPOSURE DURING PREGNANCY [None]
  - MENINGITIS [None]
  - OSTEOSCLEROSIS [None]
  - PILONIDAL CYST CONGENITAL [None]
  - TRUNCUS ARTERIOSUS PERSISTENT [None]
